FAERS Safety Report 18094167 (Version 2)
Quarter: 2020Q3

REPORT INFORMATION
  Report Type: Spontaneous
  Country: US (occurrence: US)
  Receive Date: 20200730
  Receipt Date: 20200731
  Transmission Date: 20201103
  Serious: Yes (Other)
  Sender: FDA-Public Use
  Company Number: US-GLAXOSMITHKLINE-US2020147164

PATIENT
  Age: 80 Year

DRUGS (1)
  1. ZANTAC [Suspect]
     Active Substance: RANITIDINE HYDROCHLORIDE
     Dates: start: 19800115, end: 19930115

REACTIONS (3)
  - Gastrointestinal carcinoma [Unknown]
  - Prostatic disorder [Unknown]
  - Bladder cancer [Unknown]
